FAERS Safety Report 22635493 (Version 5)
Quarter: 2023Q4

REPORT INFORMATION
  Report Type: Spontaneous
  Country: CA (occurrence: CA)
  Receive Date: 20230623
  Receipt Date: 20231207
  Transmission Date: 20240110
  Serious: Yes (Hospitalization, Other)
  Sender: FDA-Public Use
  Company Number: CA-BIOVITRUM-2023-CA-012120

PATIENT
  Age: 59 Year
  Sex: Female

DRUGS (3)
  1. KINERET [Suspect]
     Active Substance: ANAKINRA
     Indication: Pericarditis
     Dosage: 100MG, TWICE DAILY
     Route: 058
  2. KINERET [Suspect]
     Active Substance: ANAKINRA
     Dosage: 100MG, DAILY
     Route: 058
  3. CORTISONE [Suspect]
     Active Substance: CORTISONE
     Indication: Product used for unknown indication

REACTIONS (3)
  - Diverticulitis [Unknown]
  - Pericarditis [Unknown]
  - Off label use [Unknown]

NARRATIVE: CASE EVENT DATE: 20231107
